FAERS Safety Report 23220157 (Version 1)
Quarter: 2023Q4

REPORT INFORMATION
  Report Type: Report from Study
  Country: CN (occurrence: CN)
  Receive Date: 20231123
  Receipt Date: 20231123
  Transmission Date: 20240109
  Serious: Yes (Hospitalization)
  Sender: FDA-Public Use
  Company Number: CN-HUTCHMED LIMITED-HMP2023CN01163

PATIENT

DRUGS (7)
  1. TORIPALIMAB [Suspect]
     Active Substance: TORIPALIMAB
     Indication: Neuroendocrine carcinoma
     Dosage: 240 MG, Q3WEEKS
     Route: 041
     Dates: start: 20230727, end: 20230727
  2. TORIPALIMAB [Suspect]
     Active Substance: TORIPALIMAB
     Indication: Oesophageal carcinoma
  3. SURUFATINIB [Suspect]
     Active Substance: SURUFATINIB
     Indication: Neuroendocrine carcinoma
     Dosage: 250 MG, QD
     Route: 048
     Dates: start: 20230727
  4. ETORICOXIB [Concomitant]
     Active Substance: ETORICOXIB
     Indication: Pain
     Dosage: 60 MG
     Route: 048
     Dates: start: 20230726
  5. ETORICOXIB [Concomitant]
     Active Substance: ETORICOXIB
     Dosage: 60 MG
     Route: 048
  6. POTASSIUM CHLORIDE [Concomitant]
     Active Substance: POTASSIUM CHLORIDE
     Indication: Hypokalaemia
     Dosage: 0.25 G
     Route: 048
     Dates: start: 20230725, end: 20230803
  7. POTASSIUM CHLORIDE [Concomitant]
     Active Substance: POTASSIUM CHLORIDE
     Indication: Hypokalaemia

REACTIONS (3)
  - Blood corticotrophin increased [Recovered/Resolved]
  - Upper gastrointestinal haemorrhage [Recovered/Resolved]
  - Pneumonia [Recovered/Resolved]

NARRATIVE: CASE EVENT DATE: 20230815
